FAERS Safety Report 8467516-2 (Version None)
Quarter: 2012Q2

REPORT INFORMATION
  Report Type: 
  Country: None (occurrence: None)
  Receive Date: 20120626
  Receipt Date: 20120621
  Transmission Date: 20120825
  Serious: Yes (Hospitalization, Other)
  Sender: FDA-Public Use
  Company Number: CH-ROCHE-1057147

PATIENT
  Sex: Female

DRUGS (5)
  1. CYCLOPHOSPHAMIDE [Suspect]
     Indication: BREAST CANCER
     Dosage: LAST DOSE PRIOR TO THE EVENT 04/JUN/2011
     Route: 048
     Dates: start: 20111123
  2. LISINOPRIL [Concomitant]
     Dates: start: 20120114
  3. XELODA [Suspect]
     Indication: BREAST CANCER
     Dosage: LAST DOSE PRIOR TO THE EVENT 04/JUN/2011
     Route: 048
     Dates: start: 20111123
  4. LISINOPRIL [Concomitant]
     Indication: HYPERTENSION
     Route: 048
     Dates: start: 20120117
  5. AVASTIN [Suspect]
     Indication: BREAST CANCER
     Dosage: LAST DOSE PRIOR TO THE EVENT 22/MAY/2012
     Route: 042
     Dates: start: 20111122

REACTIONS (2)
  - APPENDICITIS [None]
  - RENAL ISCHAEMIA [None]
